FAERS Safety Report 5828158-8 (Version None)
Quarter: 2008Q3

REPORT INFORMATION
  Report Type: 
  Country: None (occurrence: None)
  Receive Date: 20080729
  Receipt Date: 20080714
  Transmission Date: 20090109
  Serious: Yes (Death, Life-Threatening, Other)
  Sender: FDA-Public Use
  Company Number: 2007-02258

PATIENT
  Age: 52 Year
  Sex: Male
  Weight: 58 kg

DRUGS (9)
  1. VELCADE [Suspect]
     Indication: MULTIPLE MYELOMA
     Dosage: 200 MG; INTRAVENOUS
     Route: 042
     Dates: start: 20070626, end: 20070629
  2. LANSOPRAZOLE [Suspect]
     Indication: PROPHYLAXIS
     Dosage: MG,ORAL
     Route: 048
     Dates: start: 20070630, end: 20070703
  3. BAKTAR         (SULFAMETHOXAZOL, TRIMETHOPRIM) [Suspect]
     Indication: PROPHYLAXIS
     Dosage: 15 MG, ORAL
     Route: 048
     Dates: start: 20070630, end: 20070703
  4. MEROPEN        (MEROPENEM) INJECTION [Suspect]
     Indication: LUNG DISORDER
     Dosage: 1.00 G, INTRAVENOUS
     Route: 042
     Dates: start: 20070630, end: 20070702
  5. ALLOPURINOL [Concomitant]
  6. ACETAMINOPHEN [Concomitant]
  7. MEDICON     (DEXTROMETHOPRHAN HYDROBROMIDE) [Concomitant]
  8. AMLODIPINE BESYLATE [Concomitant]
  9. MEDROL [Concomitant]

REACTIONS (13)
  - ALANINE AMINOTRANSFERASE INCREASED [None]
  - ASPARTATE AMINOTRANSFERASE INCREASED [None]
  - BLOOD LACTATE DEHYDROGENASE INCREASED [None]
  - C-REACTIVE PROTEIN INCREASED [None]
  - COUGH [None]
  - FLUID RETENTION [None]
  - HAEMOGLOBIN DECREASED [None]
  - HYPOXIA [None]
  - LUNG DISORDER [None]
  - PLATELET COUNT DECREASED [None]
  - PLEURAL EFFUSION [None]
  - PYREXIA [None]
  - SEPSIS [None]
